FAERS Safety Report 7562574-1 (Version None)
Quarter: 2011Q2

REPORT INFORMATION
  Report Type: 
  Country: None (occurrence: None)
  Receive Date: 20110614
  Receipt Date: 20110603
  Transmission Date: 20111010
  Serious: Yes (Other)
  Sender: FDA-Public Use
  Company Number: TPA2011A02833

PATIENT
  Sex: Female

DRUGS (1)
  1. EDARBI [Suspect]
     Indication: HYPERTENSION
     Dosage: 80 MG, 1 IN 1D, PER ORAL
     Route: 048
     Dates: start: 20110101, end: 20110101

REACTIONS (1)
  - LOSS OF CONSCIOUSNESS [None]
